FAERS Safety Report 13826000 (Version 1)
Quarter: 2017Q3

REPORT INFORMATION
  Report Type: Report from Study
  Country: US (occurrence: US)
  Receive Date: 20170802
  Receipt Date: 20170802
  Transmission Date: 20171127
  Serious: Yes (Hospitalization, Other)
  Sender: FDA-Public Use
  Company Number: US-SAOL THERAPEUTICS-2017SAO01261

PATIENT
  Age: 81 Year
  Sex: Male

DRUGS (4)
  1. CLONIDINE. [Suspect]
     Active Substance: CLONIDINE
     Dosage: 0.21 MG, \DAY
     Route: 037
     Dates: start: 20161026
  2. CLONIDINE. [Suspect]
     Active Substance: CLONIDINE
     Dosage: 0.267 MG, \DAY (MAX)
     Route: 037
     Dates: start: 20161026
  3. BACLOFEN. [Suspect]
     Active Substance: BACLOFEN
     Dosage: 210 ?G, \DAY
     Route: 037
     Dates: start: 20161026
  4. BACLOFEN. [Suspect]
     Active Substance: BACLOFEN
     Dosage: 267.5 ?G, \DAY (MAX)
     Route: 037
     Dates: start: 20161026

REACTIONS (4)
  - Mental status changes [Unknown]
  - Implant site infection [Unknown]
  - Staphylococcal infection [Unknown]
  - Respiratory failure [Recovered/Resolved]

NARRATIVE: CASE EVENT DATE: 20170411
